FAERS Safety Report 9377697 (Version 4)
Quarter: 2013Q3

REPORT INFORMATION
  Report Type: Report from Study
  Country: DE (occurrence: DE)
  Receive Date: 20130701
  Receipt Date: 20130814
  Transmission Date: 20140515
  Serious: Yes (Hospitalization, Other)
  Sender: FDA-Public Use
  Company Number: DE-AMGEN-DEUCT2013043483

PATIENT
  Age: 57 Year
  Sex: 0
  Weight: 47 kg

DRUGS (4)
  1. PANITUMUMAB [Suspect]
     Indication: OVARIAN CANCER RECURRENT
     Dosage: 6 MG/KG, UNK
     Route: 042
     Dates: start: 20130515
  2. PEGYLATED LIPOSOMAL DOXORUBICIN [Concomitant]
     Indication: OVARIAN CANCER RECURRENT
     Dosage: 30 MG/M2, UNK
     Route: 042
     Dates: start: 20130515
  3. CARBOPLATIN [Concomitant]
     Indication: OVARIAN CANCER RECURRENT
     Dosage: UNK
     Route: 042
     Dates: start: 201207
  4. BLOOD TRANSFUSION, AUXILIARY PRODUCTS [Concomitant]
     Dosage: UNK

REACTIONS (1)
  - Pyrexia [Recovered/Resolved]
